FAERS Safety Report 7035622-5 (Version None)
Quarter: 2010Q4

REPORT INFORMATION
  Report Type: 
  Country: None (occurrence: None)
  Receive Date: 20101008
  Receipt Date: 20100930
  Transmission Date: 20110411
  Serious: Yes (Other)
  Sender: FDA-Public Use
  Company Number: US-JNJFOC-20100704316

PATIENT
  Sex: Female
  Weight: 66.23 kg

DRUGS (5)
  1. SANDOZ FENTANYL TRANSDERMAL SYSTEM [Suspect]
     Indication: BACK PAIN
     Dosage: PRIOR TO 2005
     Route: 062
  2. FENTANYL-100 [Suspect]
     Indication: INTERVERTEBRAL DISC DEGENERATION
     Dosage: PRIOR TO 2005
     Route: 062
  3. FENTANYL-100 [Suspect]
     Indication: BONE PAIN
     Dosage: PRIOR TO 2005
     Route: 062
  4. FENTANYL CITRATE [Suspect]
     Indication: SPINAL COLUMN STENOSIS
     Route: 062
  5. TRAZODONE HCL [Concomitant]
     Route: 065

REACTIONS (3)
  - AUTONOMIC NERVOUS SYSTEM IMBALANCE [None]
  - DYSPNOEA [None]
  - WITHDRAWAL SYNDROME [None]
